FAERS Safety Report 4928604-8 (Version None)
Quarter: 2006Q1

REPORT INFORMATION
  Report Type: 
  Country: None (occurrence: None)
  Receive Date: 20060301
  Receipt Date: 20060222
  Transmission Date: 20060701
  Serious: Yes (Death)
  Sender: FDA-Public Use
  Company Number: 2006CG00381

PATIENT
  Age: 29000 Day
  Sex: Female
  Weight: 80 kg

DRUGS (6)
  1. DIPRIVAN [Suspect]
     Indication: GENERAL ANAESTHESIA
     Route: 042
     Dates: start: 20050907, end: 20050907
  2. SUFENTANIL CITRATE [Suspect]
     Indication: GENERAL ANAESTHESIA
     Route: 042
     Dates: start: 20050907, end: 20050907
  3. AUGMENTIN [Suspect]
     Indication: ANTIBIOTIC PROPHYLAXIS
     Route: 042
     Dates: start: 20050907, end: 20050907
  4. AMLOR [Concomitant]
  5. EUPRESSYL [Concomitant]
  6. KARDEGIC [Concomitant]

REACTIONS (7)
  - ANAPHYLACTIC SHOCK [None]
  - ANURIA [None]
  - BRADYCARDIA [None]
  - BUNDLE BRANCH BLOCK LEFT [None]
  - CARDIAC ARREST [None]
  - ISCHAEMIC HEPATITIS [None]
  - RENAL DISORDER [None]
